FAERS Safety Report 4699051-1 (Version None)
Quarter: 2005Q2

REPORT INFORMATION
  Report Type: 
  Country: None (occurrence: None)
  Receive Date: 20050623
  Receipt Date: 20050623
  Transmission Date: 20051028
  Serious: Yes (Hospitalization, Other)
  Sender: FDA-Public Use
  Company Number: None

PATIENT
  Sex: Male
  Weight: 104.8 kg

DRUGS (2)
  1. CISPLATIN [Suspect]
     Dosage: DAYS 1, 22, AND 43 (100 MG/M2 IV)
     Route: 042
     Dates: start: 20050530
  2. RADIATION TREATMENT [Suspect]
     Dosage: 7000 CGY OVER 35 FRACTIONS

REACTIONS (11)
  - ACUTE CORONARY SYNDROME [None]
  - ASTHENIA [None]
  - CONFUSIONAL STATE [None]
  - DYSPNOEA [None]
  - ECHOCARDIOGRAM ABNORMAL [None]
  - NAUSEA [None]
  - PRODUCTIVE COUGH [None]
  - PULMONARY EMBOLISM [None]
  - SECRETION DISCHARGE [None]
  - SYNCOPE [None]
  - TROPONIN INCREASED [None]
